FAERS Safety Report 25931228 (Version 4)
Quarter: 2025Q4

REPORT INFORMATION
  Report Type: Spontaneous
  Country: CA (occurrence: CA)
  Receive Date: 20251016
  Receipt Date: 20251125
  Transmission Date: 20260117
  Serious: Yes (Other)
  Sender: INTERCEPT PHARMACEUTICALS
  Company Number: CA-ADVANZ PHARMA-202402001072

PATIENT
  Age: 57 Year
  Sex: Female

DRUGS (27)
  1. OCALIVA [Suspect]
     Active Substance: OBETICHOLIC ACID
     Indication: Primary biliary cholangitis
     Dosage: 5 MG, QD (OCALIVA)
     Dates: start: 20240102
  2. OCALIVA [Suspect]
     Active Substance: OBETICHOLIC ACID
     Dosage: 5 MG, QOD (OCALIVA)
  3. OCALIVA [Suspect]
     Active Substance: OBETICHOLIC ACID
     Dosage: 5 MG (TAKING 5 MG MON TO FRI (5 DAYS OF WEEK) )
     Dates: start: 202503
  4. OCALIVA [Suspect]
     Active Substance: OBETICHOLIC ACID
     Dosage: 5 MG, QD (BUT HAD TO UP IT BACK TO DAILY)
  5. OCALIVA [Suspect]
     Active Substance: OBETICHOLIC ACID
     Dosage: 5 MG (TAKING 5 MG MON TO FRI (5 DAYS OF WEEK) )
     Dates: start: 202509
  6. OCALIVA [Suspect]
     Active Substance: OBETICHOLIC ACID
     Dosage: 5 MG (4 DAYS A WEEK)
  7. URSODIOL [Concomitant]
     Active Substance: URSODIOL
     Indication: Product used for unknown indication
     Dosage: 250 MG, TID
  8. URSODIOL [Concomitant]
     Active Substance: URSODIOL
     Dosage: 750 MG,QD
  9. URSODIOL [Concomitant]
     Active Substance: URSODIOL
     Dosage: 250 MG, TID
  10. URSODIOL [Concomitant]
     Active Substance: URSODIOL
     Dosage: 750 MG,QD
  11. URSODIOL [Concomitant]
     Active Substance: URSODIOL
     Dosage: 250 MG, TID
  12. URSODIOL [Concomitant]
     Active Substance: URSODIOL
     Dosage: 750 MG,QD
  13. URSODIOL [Concomitant]
     Active Substance: URSODIOL
     Dosage: UNK
  14. BEZAFIBRATE [Concomitant]
     Active Substance: BEZAFIBRATE
     Indication: Product used for unknown indication
     Dosage: UNK
  15. BEZAFIBRATE [Concomitant]
     Active Substance: BEZAFIBRATE
     Dosage: UNK
  16. BEZAFIBRATE [Concomitant]
     Active Substance: BEZAFIBRATE
     Dosage: UNK
  17. BEZAFIBRATE [Concomitant]
     Active Substance: BEZAFIBRATE
     Dosage: UNK
  18. BEZAFIBRATE [Concomitant]
     Active Substance: BEZAFIBRATE
     Indication: Product used for unknown indication
     Dosage: 400 MG, QD
  19. BEZAFIBRATE [Concomitant]
     Active Substance: BEZAFIBRATE
     Dosage: 400 MG, QD
  20. BEZAFIBRATE [Concomitant]
     Active Substance: BEZAFIBRATE
     Dosage: 400 MG, QD
  21. ESTROGEL [Concomitant]
     Active Substance: ESTRADIOL
     Indication: Hormone replacement therapy
     Dosage: UNK, QD
  22. ESTROGEL [Concomitant]
     Active Substance: ESTRADIOL
     Dosage: UNK, QD
  23. ESTROGEL [Concomitant]
     Active Substance: ESTRADIOL
     Dosage: UNK, QD
  24. Hydroxycholoquine [Concomitant]
     Indication: Sjogren^s syndrome
     Dosage: 200 MG, QD
  25. HYDROXYCHLOROQUINE [Concomitant]
     Active Substance: HYDROXYCHLOROQUINE
     Dosage: 200 MG, QD
  26. PROMETRIUM [Concomitant]
     Active Substance: PROGESTERONE
     Indication: Product used for unknown indication
     Dosage: UNK, QD
  27. Reactine [Concomitant]
     Indication: Product used for unknown indication
     Dosage: UNK

REACTIONS (25)
  - Pyelonephritis [Unknown]
  - Purpura [Not Recovered/Not Resolved]
  - Condition aggravated [Recovered/Resolved]
  - Systemic lupus erythematosus rash [Unknown]
  - Weight increased [Unknown]
  - Dry mouth [Not Recovered/Not Resolved]
  - Insomnia [Unknown]
  - Gastrointestinal disorder [Unknown]
  - Dyspepsia [Unknown]
  - Skin discolouration [Unknown]
  - Gastrooesophageal reflux disease [Unknown]
  - Urinary tract infection [Unknown]
  - Pain [Not Recovered/Not Resolved]
  - Dysuria [Unknown]
  - Myalgia [Unknown]
  - Gamma-glutamyltransferase increased [Unknown]
  - Aspartate aminotransferase increased [Unknown]
  - Constipation [Unknown]
  - Abdominal discomfort [Unknown]
  - Rash [Unknown]
  - Fatigue [Not Recovered/Not Resolved]
  - Abdominal pain [Unknown]
  - Pruritus [Not Recovered/Not Resolved]
  - Pyrexia [Unknown]
  - Intentional product use issue [Unknown]

NARRATIVE: CASE EVENT DATE: 20250101
